FAERS Safety Report 19487290 (Version 6)
Quarter: 2022Q3

REPORT INFORMATION
  Report Type: Report from Study
  Country: AU (occurrence: AU)
  Receive Date: 20210702
  Receipt Date: 20220705
  Transmission Date: 20221027
  Serious: Yes (Hospitalization)
  Sender: FDA-Public Use
  Company Number: NVSC2021AU146940

PATIENT
  Age: 52 Year
  Sex: Male
  Weight: 108 kg

DRUGS (26)
  1. TRAMETINIB [Suspect]
     Active Substance: TRAMETINIB
     Indication: Malignant melanoma
     Dosage: 1 MG, BID
     Route: 048
     Dates: start: 20210421, end: 20210628
  2. TRAMETINIB [Suspect]
     Active Substance: TRAMETINIB
     Dosage: 100 MG, BID
     Route: 048
     Dates: start: 20210714
  3. NAPORAFENIB [Suspect]
     Active Substance: NAPORAFENIB
     Indication: Malignant melanoma
     Dosage: 400 MG, BID
     Route: 048
     Dates: start: 20210421, end: 20210628
  4. NAPORAFENIB [Suspect]
     Active Substance: NAPORAFENIB
     Dosage: 100 MG, BID
     Route: 048
     Dates: start: 20210714
  5. LOPERAMIDE [Concomitant]
     Active Substance: LOPERAMIDE
     Indication: Diarrhoea
     Dosage: UNK
     Route: 065
     Dates: start: 2020
  6. ASPIRIN [Concomitant]
     Active Substance: ASPIRIN
     Indication: Myocardial infarction
     Dosage: UNK
     Route: 065
     Dates: start: 20170417
  7. CLOPIDOGREL [Concomitant]
     Active Substance: CLOPIDOGREL BISULFATE
     Indication: Myocardial infarction
     Dosage: UNK
     Route: 065
     Dates: start: 20210414
  8. LYRICA [Concomitant]
     Active Substance: PREGABALIN
     Indication: Arthralgia
     Dosage: UNK
     Route: 065
     Dates: start: 20210513, end: 20210628
  9. LYRICA [Concomitant]
     Active Substance: PREGABALIN
     Indication: Myalgia
  10. MS CONTIN [Concomitant]
     Active Substance: MORPHINE SULFATE
     Indication: Myalgia
     Dosage: UNK
     Route: 065
     Dates: start: 20210519, end: 20210628
  11. MS CONTIN [Concomitant]
     Active Substance: MORPHINE SULFATE
     Indication: Arthralgia
  12. QV [Concomitant]
     Indication: Paronychia
     Dosage: UNK
     Route: 065
     Dates: start: 20210531
  13. DOXYCYCLINE [Concomitant]
     Active Substance: DOXYCYCLINE
     Indication: Prophylaxis
     Dosage: UNK
     Route: 065
     Dates: start: 20210616
  14. DOXYCYCLINE [Concomitant]
     Active Substance: DOXYCYCLINE
     Indication: Dermatitis acneiform
  15. ACETAMINOPHEN [Concomitant]
     Active Substance: ACETAMINOPHEN
     Indication: Headache
     Dosage: UNK
     Route: 065
     Dates: start: 20210612, end: 20210628
  16. ACETAMINOPHEN [Concomitant]
     Active Substance: ACETAMINOPHEN
     Indication: Arthralgia
  17. TAPENTADOL [Concomitant]
     Active Substance: TAPENTADOL
     Indication: Myalgia
     Dosage: UNK
     Route: 065
     Dates: start: 20210624, end: 20210629
  18. TAPENTADOL [Concomitant]
     Active Substance: TAPENTADOL
     Indication: Arthralgia
  19. IRBESARTAN [Concomitant]
     Active Substance: IRBESARTAN
     Indication: Myocardial infarction
     Dosage: UNK
     Route: 065
     Dates: start: 20210417
  20. INSULIN ASPART [Concomitant]
     Active Substance: INSULIN ASPART
     Indication: Type 2 diabetes mellitus
     Dosage: UNK
     Route: 065
     Dates: start: 20200825
  21. ISOPHANE INSULIN [Concomitant]
     Active Substance: INSULIN NOS
     Indication: Type 2 diabetes mellitus
     Dosage: UNK
     Route: 065
     Dates: start: 20200825
  22. METFORMIN [Concomitant]
     Active Substance: METFORMIN HYDROCHLORIDE
     Indication: Type 2 diabetes mellitus
     Dosage: UNK
     Route: 065
     Dates: start: 20210116
  23. ROSUVASTATIN [Concomitant]
     Active Substance: ROSUVASTATIN
     Indication: Prophylaxis
     Dosage: UNK
     Route: 065
     Dates: start: 20200825
  24. BISOPROLOL [Concomitant]
     Active Substance: BISOPROLOL
     Indication: Hypertension
     Dosage: UNK
     Route: 065
     Dates: start: 2017
  25. VENTOLIN [Concomitant]
     Active Substance: ALBUTEROL SULFATE
     Indication: Asthma
     Dosage: UNK
     Route: 065
     Dates: start: 1975
  26. VITAMIN C [Concomitant]
     Active Substance: ASCORBIC ACID
     Indication: General physical condition
     Dosage: UNK
     Route: 065
     Dates: start: 2020

REACTIONS (4)
  - Arthralgia [Recovered/Resolved]
  - Headache [Recovered/Resolved]
  - Paronychia [Recovered/Resolved]
  - Myalgia [Recovering/Resolving]

NARRATIVE: CASE EVENT DATE: 20210628
